FAERS Safety Report 14674698 (Version 1)
Quarter: 2018Q1

REPORT INFORMATION
  Report Type: Spontaneous
  Country: TW (occurrence: TW)
  Receive Date: 20180323
  Receipt Date: 20180323
  Transmission Date: 20180509
  Serious: Yes (Hospitalization)
  Sender: FDA-Public Use
  Company Number: TW-FRESENIUS KABI-FK201803531

PATIENT
  Age: 19 Year
  Sex: Male

DRUGS (1)
  1. DOXORUBICIN (MANUFACTURER UNKNOWN) [Suspect]
     Active Substance: DOXORUBICIN
     Indication: SYNOVIAL SARCOMA
     Route: 065

REACTIONS (1)
  - Cardiac tamponade [Recovered/Resolved]
